FAERS Safety Report 11831556 (Version 1)
Quarter: 2015Q4

REPORT INFORMATION
  Report Type: Spontaneous
  Country: US (occurrence: None)
  Receive Date: 20151211
  Receipt Date: 20151211
  Transmission Date: 20160305
  Serious: Yes (Other)
  Sender: FDA-Public Use
  Company Number: None

PATIENT
  Age: 79 Year
  Sex: Female
  Weight: 72.58 kg

DRUGS (16)
  1. GABAPENTIN 100 MG NEURONTIN [Suspect]
     Active Substance: GABAPENTIN
     Indication: NEURALGIA
     Route: 048
     Dates: start: 20151209, end: 20151210
  2. CLONODINE [Concomitant]
  3. VITAMIN A [Concomitant]
     Active Substance: VITAMIN A
  4. POTASSIUM GLUCONATE [Concomitant]
     Active Substance: POTASSIUM GLUCONATE
  5. METAFORMIN [Concomitant]
  6. D3 [Concomitant]
     Active Substance: 25-HYDROXYCHOLECALCIFEROL, 5-TRANS-
  7. VITAMIN E [Concomitant]
     Active Substance: .ALPHA.-TOCOPHEROL
  8. MAGNESIUM [Concomitant]
     Active Substance: MAGNESIUM
  9. NUTRI CEN [Concomitant]
  10. BLOOD SUGAR TESTING KIT [Concomitant]
  11. CINNAMON. [Concomitant]
     Active Substance: CINNAMON
  12. SUPER B COMPLEX [Concomitant]
     Active Substance: CYANOCOBALAMIN\DEXPANTHENOL\NIACINAMIDE\PYRIDOXINE HYDROCHLORIDE\RIBOFLAVIN 5^-PHOSPHATE SODIUM\THIAMINE HYDROCHLORIDE\VITAMIN B COMPLEX
  13. OMEGA 3 [Concomitant]
     Active Substance: OMEGA-3 FATTY ACIDS
  14. GARLIC. [Concomitant]
     Active Substance: GARLIC
  15. BIOTIN [Concomitant]
     Active Substance: BIOTIN
  16. VITAMIN C [Concomitant]
     Active Substance: ASCORBIC ACID

REACTIONS (3)
  - Lip swelling [None]
  - Influenza like illness [None]
  - Cheilitis [None]

NARRATIVE: CASE EVENT DATE: 20151210
